FAERS Safety Report 4446973-2 (Version None)
Quarter: 2004Q3

REPORT INFORMATION
  Report Type: 
  Country: None (occurrence: None)
  Receive Date: 20040812
  Receipt Date: 20040503
  Transmission Date: 20050211
  Serious: Yes (Other)
  Sender: FDA-Public Use
  Company Number: USA040466083

PATIENT
  Age: 74 Year
  Sex: Male

DRUGS (11)
  1. CIALIS [Suspect]
     Dosage: 10 MG/L
     Dates: start: 20040301, end: 20040301
  2. PRAVACHOL [Concomitant]
  3. ASPIRIN [Concomitant]
  4. FOLGARD [Concomitant]
  5. SIMVASTATIN [Concomitant]
  6. ATENOLOL [Concomitant]
  7. HYDROCHLOROTHIAZIDE [Concomitant]
  8. TAGAMET [Concomitant]
  9. MONOPRIL [Concomitant]
  10. MULTI-VITAMIN [Concomitant]
  11. FISH OIL [Concomitant]

REACTIONS (2)
  - HYPOTENSION [None]
  - SYNCOPE [None]
